FAERS Safety Report 8855714 (Version 1)
Quarter: 2012Q4

REPORT INFORMATION
  Report Type: 
  Country: US (occurrence: US)
  Receive Date: 20121023
  Receipt Date: 20121023
  Transmission Date: 20130627
  Serious: No
  Sender: FDA-Public Use
  Company Number: US-AMGEN-USASP2012059082

PATIENT
  Age: 66 Year
  Sex: Male
  Weight: 86.17 kg

DRUGS (7)
  1. ENBREL [Suspect]
     Indication: PRODUCT USED FOR UNKNOWN INDICATION
     Dosage: 50 mg, qwk
     Route: 058
  2. VALTREX [Concomitant]
     Dosage: 1 g, UNK
  3. TRAZODONE [Concomitant]
     Dosage: 100 mg, UNK
  4. VICODIN [Concomitant]
     Dosage: 5-500 mg, UNK
  5. MELOXICAM [Concomitant]
     Dosage: 7.5 mg, UNK
  6. LEFLUNOMIDE [Concomitant]
     Dosage: 10 mg, UNK
  7. PLAVIX [Concomitant]
     Dosage: 300 mg, UNK

REACTIONS (1)
  - Pain in extremity [Unknown]
